FAERS Safety Report 13078411 (Version 1)
Quarter: 2017Q1

REPORT INFORMATION
  Report Type: Report from Study
  Country: US (occurrence: US)
  Receive Date: 20170102
  Receipt Date: 20170102
  Transmission Date: 20170428
  Serious: No
  Sender: FDA-Public Use
  Company Number: US-009507513-1612USA014661

PATIENT
  Age: 25 Year
  Sex: Female

DRUGS (1)
  1. IMPLANON [Suspect]
     Active Substance: ETONOGESTREL
     Indication: CHEMICAL CONTRACEPTION
     Dosage: STRENGHT: 68 MG, ROUTE: SYSTEMIC
     Dates: start: 20131204, end: 20131211

REACTIONS (1)
  - Breast feeding [Unknown]
